FAERS Safety Report 25625794 (Version 1)
Quarter: 2025Q3

REPORT INFORMATION
  Report Type: Spontaneous
  Country: US (occurrence: US)
  Receive Date: 20250731
  Receipt Date: 20250731
  Transmission Date: 20251021
  Serious: No
  Sender: AMICUS THERAPEUTICS
  Company Number: US-AMICUS THERAPEUTICS, INC.-AMI_4020

PATIENT
  Age: 31 Year
  Sex: Male
  Weight: 114.47 kg

DRUGS (3)
  1. GALAFOLD [Suspect]
     Active Substance: MIGALASTAT HYDROCHLORIDE
     Indication: Fabry^s disease
     Dosage: 123 MILLIGRAM, QOD
     Route: 048
     Dates: start: 201905
  2. Omega 3 fish oil + vitamin d [Concomitant]
     Indication: Product used for unknown indication
     Route: 065
  3. CREATINE [Concomitant]
     Active Substance: CREATINE
     Indication: Product used for unknown indication
     Route: 065

REACTIONS (1)
  - Product use issue [Not Recovered/Not Resolved]

NARRATIVE: CASE EVENT DATE: 20250501
